FAERS Safety Report 15938061 (Version 1)
Quarter: 2019Q1

REPORT INFORMATION
  Report Type: Spontaneous
  Country: OM (occurrence: OM)
  Receive Date: 20190208
  Receipt Date: 20190208
  Transmission Date: 20190417
  Serious: Yes (Other)
  Sender: FDA-Public Use
  Company Number: OM-GLAXOSMITHKLINE-OM2019022453

PATIENT
  Age: 48 Year
  Sex: Male

DRUGS (5)
  1. ABACAVIR. [Concomitant]
     Active Substance: ABACAVIR
     Indication: ASTHMA
     Dosage: 300 MG, UNK
     Route: 048
     Dates: start: 2010
  2. SALBUTAMOL [Concomitant]
     Active Substance: ALBUTEROL
     Indication: ASTHMA
     Dosage: AS NECESSARY
     Route: 055
     Dates: start: 1999
  3. LAMIVUDINE. [Concomitant]
     Active Substance: LAMIVUDINE
     Indication: ASTHMA
     Dosage: 150 MG, UNK
     Route: 048
     Dates: start: 2010
  4. LOPINAVIRUM + RITONAVIRUM [Interacting]
     Active Substance: LOPINAVIR\RITONAVIR
     Indication: ASTHMA
     Dosage: 1 DF, UNK
     Route: 048
     Dates: start: 2010
  5. FLUTICASONE PROPIONATE. [Suspect]
     Active Substance: FLUTICASONE PROPIONATE
     Indication: ASTHMA
     Dosage: 250 ?G, UNK
     Route: 055
     Dates: start: 2008, end: 2012

REACTIONS (2)
  - Secondary adrenocortical insufficiency [Recovered/Resolved]
  - Drug interaction [Recovered/Resolved]

NARRATIVE: CASE EVENT DATE: 2012
